FAERS Safety Report 9975987 (Version 2)
Quarter: 2014Q2

REPORT INFORMATION
  Report Type: Spontaneous
  Country: US (occurrence: US)
  Receive Date: 20140306
  Receipt Date: 20140423
  Transmission Date: 20141212
  Serious: No
  Sender: FDA-Public Use
  Company Number: US-PFIZER INC-2014061700

PATIENT
  Age: 51 Year
  Sex: Female

DRUGS (6)
  1. DAYPRO [Suspect]
     Dosage: UNK
  2. MORPHINE SULFATE [Suspect]
     Dosage: UNK
  3. DICLOFENAC EPOLAMINE [Suspect]
     Dosage: UNK
  4. TRAMADOL HYDROCHLORIDE [Suspect]
     Dosage: UNK
  5. TORADOL [Suspect]
     Dosage: UNK
  6. MOBIC [Suspect]
     Dosage: UNK

REACTIONS (1)
  - Drug hypersensitivity [Unknown]
